FAERS Safety Report 11805238 (Version 1)
Quarter: 2015Q4

REPORT INFORMATION
  Report Type: Other
  Country: FR (occurrence: FR)
  Receive Date: 20151206
  Receipt Date: 20151206
  Transmission Date: 20160305
  Serious: Yes (Hospitalization)
  Sender: FDA-Public Use
  Company Number: FR-MYLANLABS-2015M1042366

PATIENT

DRUGS (5)
  1. IFOSFAMIDE EG [Suspect]
     Active Substance: IFOSFAMIDE
     Indication: OSTEOSARCOMA
     Dosage: 1650 MG, CYCLE
     Route: 042
     Dates: start: 20130520
  2. HOLOXAN [Suspect]
     Active Substance: IFOSFAMIDE
     Indication: OSTEOSARCOMA
     Dosage: UNK
     Route: 042
     Dates: start: 20121207
  3. ETOPOSIDE MYLAN [Suspect]
     Active Substance: ETOPOSIDE
     Indication: OSTEOSARCOMA
     Dosage: 42 MG, CYCLE
     Route: 042
     Dates: start: 20130520
  4. METHOTREXATE SODIUM. [Suspect]
     Active Substance: METHOTREXATE SODIUM
     Indication: OSTEOSARCOMA
     Dosage: 7000 MG, CYCLE
     Route: 042
     Dates: start: 20130418
  5. UROMITEXAN [Suspect]
     Active Substance: MESNA
     Indication: OSTEOSARCOMA
     Dosage: 2475 MG, CYCLE
     Route: 042
     Dates: start: 20121207

REACTIONS (2)
  - Hypophosphataemia [Unknown]
  - Renal tubular disorder [Unknown]

NARRATIVE: CASE EVENT DATE: 20130516
